FAERS Safety Report 14808738 (Version 1)
Quarter: 2018Q2

REPORT INFORMATION
  Report Type: Spontaneous
  Country: None (occurrence: US)
  Receive Date: 20180425
  Receipt Date: 20180425
  Transmission Date: 20180711
  Serious: No
  Sender: FDA-Public Use
  Company Number: US-MEDAC PHARMA, INC.-2046494

PATIENT
  Age: 66 Year
  Sex: Female

DRUGS (4)
  1. ENBREL [Concomitant]
     Active Substance: ETANERCEPT
     Dates: start: 2016, end: 2017
  2. RASUVO [Suspect]
     Active Substance: METHOTREXATE SODIUM
     Indication: PSORIATIC ARTHROPATHY
     Dates: start: 2014, end: 2015
  3. HUMIRA [Concomitant]
     Active Substance: ADALIMUMAB
     Dates: start: 2014, end: 2016
  4. COSENTYX [Concomitant]
     Active Substance: SECUKINUMAB

REACTIONS (4)
  - Alopecia [Unknown]
  - Malaise [Unknown]
  - Fatigue [Unknown]
  - Drug ineffective [Unknown]
